FAERS Safety Report 13638195 (Version 2)
Quarter: 2017Q3

REPORT INFORMATION
  Report Type: Report from Study
  Country: JP (occurrence: JP)
  Receive Date: 20170609
  Receipt Date: 20170705
  Transmission Date: 20171127
  Serious: Yes (Hospitalization)
  Sender: FDA-Public Use
  Company Number: JP-PFIZER INC-2017251994

PATIENT
  Age: 71 Year
  Sex: Male
  Weight: 59 kg

DRUGS (4)
  1. METHOTREXATE SODIUM. [Suspect]
     Active Substance: METHOTREXATE SODIUM
     Indication: RHEUMATOID ARTHRITIS
     Dosage: 14 MG, WEEKLY
     Dates: end: 20170414
  2. TACROLIMUS. [Suspect]
     Active Substance: TACROLIMUS
     Indication: RHEUMATOID ARTHRITIS
     Dosage: 0.5 MG, UNK
     Route: 048
     Dates: start: 20160617, end: 20170414
  3. PREDNISOLONE. [Suspect]
     Active Substance: PREDNISOLONE
     Indication: RHEUMATOID ARTHRITIS
     Dosage: 3 MG, DAILY
     Dates: end: 20170414
  4. NO SUBJECT DRUG [Suspect]
     Active Substance: UNSPECIFIED INGREDIENT

REACTIONS (1)
  - Cellulitis [Recovered/Resolved]

NARRATIVE: CASE EVENT DATE: 20170424
